FAERS Safety Report 5290565-2 (Version None)
Quarter: 2007Q2

REPORT INFORMATION
  Report Type: 
  Country: None (occurrence: None)
  Receive Date: 20070409
  Receipt Date: 20070328
  Transmission Date: 20071010
  Serious: Yes (Life-Threatening, Hospitalization)
  Sender: FDA-Public Use
  Company Number: ES-GENENTECH-239393

PATIENT
  Age: 68 Year
  Sex: Male
  Weight: 62 kg

DRUGS (3)
  1. AVASTIN [Suspect]
     Indication: COLON CANCER
     Dosage: 25 MG/ML, UNK
     Route: 042
     Dates: start: 20061113, end: 20070130
  2. FOLINIC ACID [Concomitant]
     Indication: COLON CANCER
     Dates: start: 20060619, end: 20070130
  3. IRINOTECAN HCL [Concomitant]
     Indication: COLON CANCER
     Dates: start: 20060619, end: 20070130

REACTIONS (1)
  - RENAL FAILURE ACUTE [None]
